FAERS Safety Report 9410968 (Version 1)
Quarter: 2013Q3

REPORT INFORMATION
  Report Type: Spontaneous
  Country: US (occurrence: US)
  Receive Date: 20130719
  Receipt Date: 20130719
  Transmission Date: 20140515
  Serious: Yes (Other)
  Sender: FDA-Public Use
  Company Number: US-BRISTOL-MYERS SQUIBB COMPANY-19080340

PATIENT
  Age: 50 Year
  Sex: Female

DRUGS (6)
  1. ORENCIA FOR INJ [Suspect]
     Indication: RHEUMATOID ARTHRITIS
     Route: 042
     Dates: end: 201212
  2. PREDNISONE [Concomitant]
     Dosage: TABS
  3. METHOTREXATE [Concomitant]
     Dosage: TABS?10 TABLETS (250 MG)
  4. FOLIC ACID [Concomitant]
     Dosage: TABLETS
  5. HYDROXYCHLOROQUINE [Concomitant]
     Dosage: TABLETS
  6. VITAMIN E [Concomitant]
     Dosage: 1DF = 400 UNITS

REACTIONS (2)
  - Systemic lupus erythematosus [Recovered/Resolved]
  - Upper respiratory tract infection [Recovered/Resolved]
